FAERS Safety Report 13736893 (Version 2)
Quarter: 2017Q3

REPORT INFORMATION
  Report Type: Spontaneous
  Country: TW (occurrence: TW)
  Receive Date: 20170710
  Receipt Date: 20170804
  Transmission Date: 20171127
  Serious: Yes (Other)
  Sender: FDA-Public Use
  Company Number: TW-CELGENEUS-TWN-20170609354

PATIENT
  Age: 75 Year
  Sex: Female
  Weight: 49.5 kg

DRUGS (11)
  1. RASTOL [Concomitant]
     Indication: DIURETIC THERAPY
     Dosage: 40 MILLIGRAM
     Route: 048
     Dates: start: 20170504, end: 20170601
  2. VIRLESS [Concomitant]
     Indication: HERPES VIRUS INFECTION
     Route: 048
     Dates: start: 20170330, end: 20170608
  3. FUCOLE PARAN [Concomitant]
     Indication: ANALGESIC THERAPY
     Route: 048
     Dates: start: 20170323, end: 20170621
  4. SENNAPUR [Concomitant]
     Indication: CONSTIPATION
     Route: 048
     Dates: start: 20170420, end: 20170601
  5. EXFORGE [Concomitant]
     Active Substance: AMLODIPINE BESYLATE\VALSARTAN
     Indication: CARDIOVASCULAR DISORDER
     Route: 048
     Dates: start: 20170323, end: 20170622
  6. REVLIMID [Suspect]
     Active Substance: LENALIDOMIDE
     Dosage: 10 MILLIGRAM
     Route: 048
     Dates: start: 20170710
  7. DEXAMETHASONE. [Concomitant]
     Active Substance: DEXAMETHASONE
     Indication: STEROID THERAPY
     Dosage: 4 MILLIGRAM
     Route: 048
     Dates: start: 20170323, end: 20170612
  8. LOWEN [Concomitant]
     Indication: SEDATIVE THERAPY
     Route: 048
     Dates: start: 20170406, end: 20170622
  9. REVLIMID [Suspect]
     Active Substance: LENALIDOMIDE
     Indication: PLASMA CELL MYELOMA
     Dosage: 10 MILLIGRAM
     Route: 048
     Dates: start: 20170427, end: 20170621
  10. ULTRACET [Concomitant]
     Active Substance: ACETAMINOPHEN\TRAMADOL HYDROCHLORIDE
     Indication: ANALGESIC THERAPY
     Route: 048
     Dates: start: 20170413, end: 20170518
  11. TRANCOLON [Concomitant]
     Active Substance: MEPENZOLATE BROMIDE
     Indication: PROPHYLAXIS
     Dosage: 7.5 MILLIGRAM
     Route: 048
     Dates: start: 20170601, end: 20170608

REACTIONS (2)
  - Leukocytosis [Recovered/Resolved]
  - Nephritis [Recovered/Resolved]

NARRATIVE: CASE EVENT DATE: 20170621
